FAERS Safety Report 25980594 (Version 1)
Quarter: 2025Q4

REPORT INFORMATION
  Report Type: Report from Study
  Country: US (occurrence: US)
  Receive Date: 20251030
  Receipt Date: 20251030
  Transmission Date: 20260118
  Serious: No
  Sender: MALLINCKRODT
  Company Number: US-MALLINCKRODT-MNK202506706

PATIENT
  Sex: Male

DRUGS (1)
  1. CORTICOTROPIN [Suspect]
     Active Substance: CORTICOTROPIN
     Indication: Proteinuria
     Dosage: UNKNOWN

REACTIONS (2)
  - Adverse drug reaction [Unknown]
  - Inappropriate schedule of product administration [Unknown]
